FAERS Safety Report 6865973-6 (Version None)
Quarter: 2010Q3

REPORT INFORMATION
  Report Type: 
  Country: None (occurrence: None)
  Receive Date: 20100722
  Receipt Date: 20100708
  Transmission Date: 20110219
  Serious: Yes (Other)
  Sender: FDA-Public Use
  Company Number: PHHY2010DE17067

PATIENT
  Age: 47 Year
  Sex: Female

DRUGS (1)
  1. TEGRETOL-XR [Suspect]
     Indication: EPILEPSY
     Dosage: 1 TABLET (MORNING), 1.5 TABLETS (EVENING)
     Route: 048

REACTIONS (1)
  - OBESITY [None]
